FAERS Safety Report 6969990-7 (Version None)
Quarter: 2010Q3

REPORT INFORMATION
  Report Type: 
  Country: None (occurrence: None)
  Receive Date: 20100823
  Receipt Date: 20100518
  Transmission Date: 20110219
  Serious: No
  Sender: FDA-Public Use
  Company Number: 012202

PATIENT
  Sex: Female
  Weight: 83.9 kg

DRUGS (3)
  1. CIMZIA [Suspect]
     Indication: RHEUMATOID ARTHRITIS
     Dosage: (400 MG 1X/DAY WEEKS SUBCUTANEOUS)
     Route: 058
     Dates: start: 20100426
  2. METHOTREXATE [Concomitant]
  3. PREDNISONE [Concomitant]

REACTIONS (2)
  - DRUG DOSE OMISSION [None]
  - URINARY TRACT INFECTION [None]
